FAERS Safety Report 7915070-3 (Version None)
Quarter: 2011Q4

REPORT INFORMATION
  Report Type: 
  Country: None (occurrence: None)
  Receive Date: 20111115
  Receipt Date: 20111115
  Transmission Date: 20120403
  Serious: Yes (Other)
  Sender: FDA-Public Use
  Company Number: IT-PFIZER INC-2011197215

PATIENT
  Age: 61 Year
  Sex: Female

DRUGS (1)
  1. METHYLPREDNISOLONE ACETATE [Suspect]
     Indication: SKIN EXFOLIATION
     Dosage: 40 MG, SINGLE
     Dates: start: 20110623, end: 20110623

REACTIONS (2)
  - DYSPNOEA [None]
  - URTICARIA [None]
